FAERS Safety Report 11037595 (Version 1)
Quarter: 2015Q2

REPORT INFORMATION
  Report Type: Spontaneous
  Country: US (occurrence: None)
  Receive Date: 20150415
  Receipt Date: 20150415
  Transmission Date: 20150821
  Serious: Yes (Hospitalization, Disabling, Other)
  Sender: FDA-Public Use
  Company Number: None

PATIENT
  Age: 51 Year
  Sex: Female
  Weight: 61.24 kg

DRUGS (8)
  1. VALIUM [Concomitant]
     Active Substance: DIAZEPAM
  2. MULTIVITAMIN [Concomitant]
     Active Substance: VITAMINS
  3. LIDOCAINE. [Suspect]
     Active Substance: LIDOCAINE
     Dosage: 2ML ONCE DAILY INJECTED INTO SPINAL AREA
     Dates: start: 20150129, end: 20150129
  4. OMEPROZOLE [Concomitant]
  5. ASPIRIN. [Concomitant]
     Active Substance: ASPIRIN
  6. MULTI MINERAL [Concomitant]
  7. CELESTONE [Suspect]
     Active Substance: BETAMETHASONE
     Indication: CHEST PAIN
     Dosage: INJECTION -- INJECTED INTO SPINAL AREA
     Dates: start: 20150129, end: 20150129
  8. LYRICA [Concomitant]
     Active Substance: PREGABALIN

REACTIONS (11)
  - Asthenia [None]
  - Vomiting [None]
  - Cerebrovascular accident [None]
  - Cognitive disorder [None]
  - Speech disorder [None]
  - Seizure [None]
  - Encephalopathy [None]
  - Fall [None]
  - Dizziness [None]
  - Hypoaesthesia [None]
  - Loss of consciousness [None]

NARRATIVE: CASE EVENT DATE: 20150129
